FAERS Safety Report 6112506-8 (Version None)
Quarter: 2009Q1

REPORT INFORMATION
  Report Type: 
  Country: None (occurrence: None)
  Receive Date: 20090312
  Receipt Date: 20090306
  Transmission Date: 20090719
  Serious: Yes (Hospitalization)
  Sender: FDA-Public Use
  Company Number: PHHO2009DE02516

PATIENT
  Sex: Male
  Weight: 90 kg

DRUGS (4)
  1. CYCLOSPORINE [Suspect]
     Dosage: UNK
     Dates: start: 20081210
  2. RAD 666 RAD+TAB [Suspect]
     Indication: LIVER TRANSPLANT
     Dosage: 2 MG
     Route: 048
     Dates: start: 20081210
  3. BASILIXIMAB [Suspect]
     Dosage: UNK
     Dates: start: 20081210
  4. PREDNISOLONE [Concomitant]
     Indication: PROPHYLAXIS AGAINST TRANSPLANT REJECTION
     Dosage: 10 MG
     Dates: start: 20090109

REACTIONS (1)
  - DIABETES MELLITUS [None]
